FAERS Safety Report 14216221 (Version 2)
Quarter: 2017Q4

REPORT INFORMATION
  Report Type: Spontaneous
  Country: CA (occurrence: CA)
  Receive Date: 20171122
  Receipt Date: 20171127
  Transmission Date: 20180321
  Serious: Yes (Other)
  Sender: FDA-Public Use
  Company Number: CA-APOTEX-2017AP021531

PATIENT
  Age: 42 Year
  Sex: Female

DRUGS (3)
  1. ROBITUSSIN (GUAIFENESIN) [Concomitant]
     Active Substance: GUAIFENESIN
     Indication: COUGH
     Dosage: UNK
     Route: 065
  2. APO-CLARITHROMYCIN [Suspect]
     Active Substance: CLARITHROMYCIN
     Indication: LOWER RESPIRATORY TRACT INFECTION
     Dosage: 250 MG, UNK
     Route: 048
     Dates: start: 20171108, end: 20171112
  3. APO-CLARITHROMYCIN [Suspect]
     Active Substance: CLARITHROMYCIN
     Indication: BRONCHITIS

REACTIONS (8)
  - Dysphonia [Not Recovered/Not Resolved]
  - Chest discomfort [Recovered/Resolved]
  - Fatigue [Recovered/Resolved]
  - Reaction to excipient [Not Recovered/Not Resolved]
  - Choking [Not Recovered/Not Resolved]
  - Condition aggravated [Not Recovered/Not Resolved]
  - Dyspnoea [Recovered/Resolved]
  - Nausea [Not Recovered/Not Resolved]

NARRATIVE: CASE EVENT DATE: 20171108
